FAERS Safety Report 11638998 (Version 1)
Quarter: 2015Q4

REPORT INFORMATION
  Report Type: Spontaneous
  Country: US (occurrence: US)
  Receive Date: 20151018
  Receipt Date: 20151018
  Transmission Date: 20160304
  Serious: Yes (Other)
  Sender: FDA-Public Use
  Company Number: US-ELI_LILLY_AND_COMPANY-US201510002574

PATIENT
  Sex: Male

DRUGS (2)
  1. ZYPREXA [Suspect]
     Active Substance: OLANZAPINE
     Indication: BIPOLAR DISORDER
     Dosage: 15 MG, UNKNOWN
     Route: 065
  2. ZYPREXA [Suspect]
     Active Substance: OLANZAPINE
     Dosage: 20 MG, UNKNOWN
     Route: 065
     Dates: start: 201401, end: 20140212

REACTIONS (12)
  - Weight decreased [Unknown]
  - Restlessness [Unknown]
  - Confusional state [Unknown]
  - Extrapyramidal disorder [Unknown]
  - Dry mouth [Unknown]
  - Suicide attempt [Unknown]
  - Immobile [Unknown]
  - Vomiting [Unknown]
  - Hyperhidrosis [Unknown]
  - Hallucination [Unknown]
  - Nightmare [Unknown]
  - Muscle rigidity [Unknown]

NARRATIVE: CASE EVENT DATE: 201312
